FAERS Safety Report 22389340 (Version 1)
Quarter: 2023Q2

REPORT INFORMATION
  Report Type: Spontaneous
  Country: NZ (occurrence: None)
  Receive Date: 20230531
  Receipt Date: 20230531
  Transmission Date: 20230721
  Serious: Yes (Other)
  Sender: FDA-Public Use
  Company Number: 2023A110067

PATIENT
  Age: 618 Month
  Sex: Male

DRUGS (1)
  1. SEROQUEL [Suspect]
     Active Substance: QUETIAPINE FUMARATE
     Indication: Bipolar disorder
     Dosage: ONE OF EACH 100 MG AND 25 MG TABLET
     Route: 048

REACTIONS (9)
  - Hepatic cirrhosis [Unknown]
  - Mood altered [Unknown]
  - Insomnia [Unknown]
  - Headache [Unknown]
  - Irritability [Unknown]
  - Weight increased [Unknown]
  - Food craving [Unknown]
  - Eating disorder [Unknown]
  - Helicobacter gastritis [Unknown]

NARRATIVE: CASE EVENT DATE: 20221201
